FAERS Safety Report 18417648 (Version 2)
Quarter: 2020Q4

REPORT INFORMATION
  Report Type: Spontaneous
  Country: US (occurrence: US)
  Receive Date: 20201022
  Receipt Date: 20201207
  Transmission Date: 20210114
  Serious: Yes (Hospitalization)
  Sender: FDA-Public Use
  Company Number: US-SEATTLE GENETICS-2020SGN03211

PATIENT
  Age: 72 Year
  Sex: Female

DRUGS (9)
  1. TUKYSA [Suspect]
     Active Substance: TUCATINIB
     Indication: BREAST CANCER FEMALE
     Dosage: 150 MG, UNK
     Dates: start: 20200716
  2. TUKYSA [Suspect]
     Active Substance: TUCATINIB
     Dosage: UNK
     Dates: start: 20201125
  3. TUKYSA [Suspect]
     Active Substance: TUCATINIB
     Dosage: 250 MG, UNK
     Dates: start: 20201201
  4. TUKYSA [Suspect]
     Active Substance: TUCATINIB
     Dosage: 300 MG, BID
     Route: 048
     Dates: start: 202007
  5. HERCEPTIN [Concomitant]
     Active Substance: TRASTUZUMAB
     Indication: BREAST CANCER METASTATIC
  6. XELODA [Suspect]
     Active Substance: CAPECITABINE
     Indication: BREAST CANCER METASTATIC
     Dosage: UNK
  7. XELODA [Suspect]
     Active Substance: CAPECITABINE
     Dosage: UNK
     Dates: start: 20201125
  8. XELODA [Suspect]
     Active Substance: CAPECITABINE
     Dosage: 1150 MG, UNK
     Dates: start: 20201201
  9. DOXYCYCLINE. [Suspect]
     Active Substance: DOXYCYCLINE
     Indication: PRODUCT USED FOR UNKNOWN INDICATION

REACTIONS (16)
  - Blood pressure fluctuation [Recovered/Resolved]
  - Palmar-plantar erythrodysaesthesia syndrome [Recovering/Resolving]
  - Diarrhoea [Recovered/Resolved]
  - Gait disturbance [Unknown]
  - Erythema [Unknown]
  - Nausea [Recovered/Resolved]
  - Vomiting [Unknown]
  - Disorientation [Unknown]
  - Blister [Unknown]
  - Skin exfoliation [Unknown]
  - Blood blister [Unknown]
  - Retching [Unknown]
  - Balance disorder [Unknown]
  - Dizziness [Unknown]
  - Localised infection [Unknown]
  - Headache [Unknown]

NARRATIVE: CASE EVENT DATE: 20200720
